FAERS Safety Report 20912092 (Version 1)
Quarter: 2022Q2

REPORT INFORMATION
  Report Type: Spontaneous
  Country: NL (occurrence: NL)
  Receive Date: 20220603
  Receipt Date: 20220603
  Transmission Date: 20220721
  Serious: Yes (Hospitalization)
  Sender: FDA-Public Use
  Company Number: None

PATIENT
  Age: 49 Year
  Sex: Male
  Weight: 123 kg

DRUGS (6)
  1. HYDROCHLOROTHIAZIDE [Suspect]
     Active Substance: HYDROCHLOROTHIAZIDE
     Indication: Hypertension
     Dosage: 25 MILLIGRAM DAILY; 1 X PER DAY 1 PIECE , BRAND NAME NOT SPECIFIED , DURATION : 19 DAYS , STRENGTH :
     Dates: start: 20220421, end: 20220510
  2. OXYCODONE [Concomitant]
     Active Substance: OXYCODONE
     Dosage: 5 MG (MILLIGRAM) , BRAND NAME NOT SPECIFIED ,STRENGTH : 5 MG , THERAPY START DATE AND END DATE : ASK
  3. ACETAMINOPHEN [Concomitant]
     Active Substance: ACETAMINOPHEN
     Dosage: 500 MG (MILLIGRAM) , BRAND NAME NOT SPECIFIED , STRENGTH : 500 MG , THERAPY START DATE AND END DATE
  4. TOLTERODINE [Concomitant]
     Active Substance: TOLTERODINE
     Dosage: MODIFIED RELEASE CAPSULE, 4 MG (MILLIGRAM) , TOLTERODINE CAPSULE MGA 4MG / BRAND NAME NOT SPECIFIED
  5. MOVICOLON [Concomitant]
     Active Substance: POLYETHYLENE GLYCOL 3350\POTASSIUM CHLORIDE\SODIUM BICARBONATE\SODIUM CHLORIDE
     Dosage: POWDER FOR DRINK , MACROGOL/ZOUTEN PDR V DRANK (MOVICOLON+GENERIEK) / MOVICOLON NATUREL POEDER VOOR
  6. PANTOPRAZOLE SODIUM [Concomitant]
     Active Substance: PANTOPRAZOLE SODIUM
     Dosage: 40 MG (MILLIGRAM) , PANTOPRAZOL TABLET MSR 40MG / BRAND NAME NOT SPECIFIED , STRENGTH : 40 MG , THE

REACTIONS (2)
  - Hyponatraemia [Recovering/Resolving]
  - Pancreatitis [Recovering/Resolving]

NARRATIVE: CASE EVENT DATE: 20220510
